FAERS Safety Report 4383834-1 (Version None)
Quarter: 2004Q2

REPORT INFORMATION
  Report Type: 
  Country: None (occurrence: None)
  Receive Date: 20040623
  Receipt Date: 20030925
  Transmission Date: 20050107
  Serious: No
  Sender: FDA-Public Use
  Company Number: 2003UW02291

PATIENT
  Age: 73 Year
  Sex: Female
  Weight: 73 kg

DRUGS (5)
  1. SENSORCAINE [Suspect]
     Indication: ANAESTHESIA
  2. CLONIDINE HCL [Suspect]
     Indication: ANAESTHESIA
     Dosage: 150 UG IM
  3. ADRENALINE [Suspect]
     Indication: ANAESTHESIA
     Dosage: 100 UG IM
  4. GLICLAZIDE [Concomitant]
  5. THIAZIDES [Concomitant]

REACTIONS (1)
  - CONVULSION [None]
